FAERS Safety Report 7721764-5 (Version None)
Quarter: 2011Q3

REPORT INFORMATION
  Report Type: 
  Country: None (occurrence: None)
  Receive Date: 20110831
  Receipt Date: 20110822
  Transmission Date: 20111222
  Serious: Yes (Other)
  Sender: FDA-Public Use
  Company Number: US-ELI_LILLY_AND_COMPANY-US201108007549

PATIENT
  Sex: Female
  Weight: 43.719 kg

DRUGS (7)
  1. SEROQUEL [Concomitant]
     Dosage: UNK, UNKNOWN
     Route: 065
  2. ASPIRIN [Concomitant]
     Dosage: 81 MG, UNKNOWN
     Route: 065
  3. MORPHINE [Concomitant]
     Dosage: 30 MG, TID
  4. EFFIENT [Suspect]
     Indication: STENT PLACEMENT
     Dosage: 10 MG, QD
     Route: 065
     Dates: start: 20110110
  5. XANAX [Concomitant]
     Dosage: UNK, UP TO 6 A DAY
     Route: 065
  6. NEXIUM [Concomitant]
     Dosage: UNK, UNKNOWN
     Route: 065
  7. VYTORIN [Concomitant]
     Dosage: 10/80 MG, UNKNOWN
     Route: 065

REACTIONS (19)
  - WEIGHT DECREASED [None]
  - DIZZINESS [None]
  - HEART RATE INCREASED [None]
  - FEELING COLD [None]
  - GASTRIC ULCER HAEMORRHAGE [None]
  - ABDOMINAL DISCOMFORT [None]
  - VISUAL IMPAIRMENT [None]
  - FATIGUE [None]
  - HYPERHIDROSIS [None]
  - HEADACHE [None]
  - VOMITING [None]
  - CHEST DISCOMFORT [None]
  - LOSS OF CONSCIOUSNESS [None]
  - INCREASED TENDENCY TO BRUISE [None]
  - DYSPNOEA [None]
  - OFF LABEL USE [None]
  - HEART RATE IRREGULAR [None]
  - DYSPHAGIA [None]
  - IRRITABLE BOWEL SYNDROME [None]
